FAERS Safety Report 15630466 (Version 1)
Quarter: 2018Q4

REPORT INFORMATION
  Report Type: Spontaneous
  Country: IT (occurrence: IT)
  Receive Date: 20181119
  Receipt Date: 20181119
  Transmission Date: 20190205
  Serious: Yes (Other)
  Sender: FDA-Public Use
  Company Number: IT-TEVA-2018-IT-976300

PATIENT
  Age: 49 Year
  Sex: Male

DRUGS (2)
  1. TENOFOVIR DISOPROXIL TEVA 245 MG [Suspect]
     Active Substance: TENOFOVIR DISOPROXIL
     Indication: HEPATITIS B
     Dosage: 300 MILLIGRAM DAILY;
     Route: 048
     Dates: start: 20171001
  2. ENTECAVIR MYLAN [Suspect]
     Active Substance: ENTECAVIR
     Indication: HEPATITIS B
     Dosage: 1 MILLIGRAM DAILY;
     Route: 048
     Dates: start: 20171001

REACTIONS (3)
  - Hypertransaminasaemia [Not Recovered/Not Resolved]
  - Hepatitis B reactivation [Not Recovered/Not Resolved]
  - Drug ineffective [Not Recovered/Not Resolved]

NARRATIVE: CASE EVENT DATE: 20181001
